FAERS Safety Report 9775290 (Version 2)
Quarter: 2013Q4

REPORT INFORMATION
  Report Type: Spontaneous
  Country: DE (occurrence: DE)
  Receive Date: 20131220
  Receipt Date: 20131220
  Transmission Date: 20140711
  Serious: Yes (Hospitalization)
  Sender: FDA-Public Use
  Company Number: DE-ENDO PHARMACEUTICALS INC.-FRVA20130029

PATIENT
  Age: 55 Year
  Sex: Female
  Weight: 64 kg

DRUGS (2)
  1. FROVA [Suspect]
     Indication: MIGRAINE
     Route: 048
     Dates: start: 20130525, end: 20130525
  2. FROVA [Suspect]
     Route: 048

REACTIONS (4)
  - Coronary artery disease [Recovered/Resolved]
  - Acute myocardial infarction [Recovered/Resolved]
  - Ventricular fibrillation [None]
  - Acute myocardial infarction [None]
